FAERS Safety Report 10607740 (Version 5)
Quarter: 2015Q1

REPORT INFORMATION
  Report Type: Spontaneous
  Country: TW (occurrence: TW)
  Receive Date: 20141125
  Receipt Date: 20150122
  Transmission Date: 20150720
  Serious: Yes (Death, Hospitalization)
  Sender: FDA-Public Use
  Company Number: TW-PFIZER INC-2014318963

PATIENT
  Age: 64 Year
  Sex: Male

DRUGS (1)
  1. SUTENT [Suspect]
     Active Substance: SUNITINIB MALATE
     Indication: RENAL CELL CARCINOMA
     Dosage: 50 MG, DAILY, FOUR WEEKS ON AND TWO WEEKS OFF
     Route: 048
     Dates: start: 20141110

REACTIONS (10)
  - Pleural effusion [Unknown]
  - Pleural effusion [Recovered/Resolved]
  - Fatigue [Unknown]
  - Decreased appetite [Unknown]
  - Gingival swelling [Recovered/Resolved]
  - Death [Fatal]
  - Asthenia [Unknown]
  - Dyspnoea [Unknown]
  - Disease progression [Unknown]
  - Renal cell carcinoma [Unknown]

NARRATIVE: CASE EVENT DATE: 2014
